FAERS Safety Report 5530549-X (Version None)
Quarter: 2007Q4

REPORT INFORMATION
  Report Type: 
  Country: None (occurrence: None)
  Receive Date: 20071130
  Receipt Date: 20071121
  Transmission Date: 20080405
  Serious: Yes (Hospitalization)
  Sender: FDA-Public Use
  Company Number: IT-JNJFOC-20071107648

PATIENT
  Age: 73 Year
  Sex: Male

DRUGS (4)
  1. TAVANIC [Suspect]
     Indication: PLEURISY
     Route: 042
  2. TAVANIC [Suspect]
     Indication: PNEUMONIA
     Route: 042
  3. ENALAPRIL [Concomitant]
     Route: 048
  4. CEFTRIAXONE SODIUM [Concomitant]
     Route: 042

REACTIONS (3)
  - ATRIAL FIBRILLATION [None]
  - ATRIAL FLUTTER [None]
  - NO THERAPEUTIC RESPONSE [None]
